FAERS Safety Report 6046158-2 (Version None)
Quarter: 2009Q1

REPORT INFORMATION
  Report Type: 
  Country: None (occurrence: None)
  Receive Date: 20090121
  Receipt Date: 20090121
  Transmission Date: 20090719
  Serious: Yes (Other)
  Sender: FDA-Public Use
  Company Number: None

PATIENT
  Age: 40 Year
  Sex: Male
  Weight: 79.3795 kg

DRUGS (1)
  1. HALCION [Suspect]
     Indication: TOOTH EXTRACTION
     Dosage: 6 TABLETS 1 TIME PO 1 TIME
     Route: 048

REACTIONS (1)
  - UNEVALUABLE EVENT [None]
